FAERS Safety Report 9911161 (Version 2)
Quarter: 2014Q1

REPORT INFORMATION
  Report Type: Spontaneous
  Country: US (occurrence: US)
  Receive Date: 20140219
  Receipt Date: 20140304
  Transmission Date: 20141002
  Serious: No
  Sender: FDA-Public Use
  Company Number: US-009507513-1402USA008501

PATIENT
  Age: 63 Year
  Sex: Male

DRUGS (3)
  1. PEGINTRON [Suspect]
     Indication: HEPATITIS C
     Dosage: UNSPECIFIED DOSE, WEEKLY, REDIPEN
     Route: 058
     Dates: start: 20140214
  2. RIBASPHERE [Suspect]
     Dosage: 600 MG, UNK
     Dates: start: 20140214
  3. RIBASPHERE [Suspect]
     Dosage: 400 MG, UNK
     Dates: start: 20140214

REACTIONS (4)
  - Chills [Recovered/Resolved]
  - Fatigue [Recovered/Resolved]
  - Pyrexia [Recovered/Resolved]
  - Product quality issue [Unknown]
